FAERS Safety Report 5676836-6 (Version None)
Quarter: 2008Q1

REPORT INFORMATION
  Report Type: 
  Country: None (occurrence: None)
  Receive Date: 20080324
  Receipt Date: 20080222
  Transmission Date: 20080703
  Serious: No
  Sender: FDA-Public Use
  Company Number: US-BAYER-200815239NA

PATIENT
  Age: 27 Year
  Sex: Female

DRUGS (2)
  1. YASMIN [Suspect]
     Route: 048
  2. CELEXA [Concomitant]

REACTIONS (2)
  - HYPOMENORRHOEA [None]
  - POLYMENORRHOEA [None]
